FAERS Safety Report 25784304 (Version 2)
Quarter: 2025Q4

REPORT INFORMATION
  Report Type: Spontaneous
  Country: US (occurrence: US)
  Receive Date: 20250910
  Receipt Date: 20251117
  Transmission Date: 20260117
  Serious: Yes (Hospitalization, Other)
  Sender: SYNDAX
  Company Number: US-SYNDAX PHARMACEUTICALS, INC.-2025US000686

PATIENT
  Sex: Male
  Weight: 79.986 kg

DRUGS (2)
  1. REVUFORJ [Suspect]
     Active Substance: REVUMENIB CITRATE
     Indication: Product used for unknown indication
     Dosage: 160 MILLIGRAM, BID
     Route: 048
  2. GILTERITINIB [Concomitant]
     Active Substance: GILTERITINIB
     Indication: Product used for unknown indication
     Dosage: 80 MILLIGRAM, DAILY
     Route: 048

REACTIONS (6)
  - Illness [Unknown]
  - Renal failure [Unknown]
  - White blood cell count abnormal [Unknown]
  - Product dose omission issue [Unknown]
  - Platelet count decreased [Unknown]
  - Haemoglobin decreased [Unknown]
